FAERS Safety Report 13437536 (Version 1)
Quarter: 2017Q2

REPORT INFORMATION
  Report Type: Spontaneous
  Country: US (occurrence: US)
  Receive Date: 20170413
  Receipt Date: 20170413
  Transmission Date: 20170830
  Serious: No
  Sender: FDA-Public Use
  Company Number: US-SA-2016SA087968

PATIENT
  Age: 47 Year
  Sex: Male
  Weight: 81.64 kg

DRUGS (1)
  1. ALLEGRA-D [Suspect]
     Active Substance: FEXOFENADINE\PSEUDOEPHEDRINE
     Indication: HYPERSENSITIVITY
     Dosage: 1 EVERY 24 HRS
     Route: 048
     Dates: start: 20160428, end: 20160430

REACTIONS (3)
  - Product taste abnormal [Unknown]
  - Throat irritation [Recovered/Resolved]
  - Drug ineffective [Unknown]
